FAERS Safety Report 9849371 (Version 1)
Quarter: 2014Q1

REPORT INFORMATION
  Report Type: Spontaneous
  Country: US (occurrence: None)
  Receive Date: 20140122
  Receipt Date: 20140122
  Transmission Date: 20141002
  Serious: Yes (Death)
  Sender: FDA-Public Use
  Company Number: B0959083A

PATIENT
  Age: 69 Year
  Sex: Male

DRUGS (7)
  1. BUPROPION HYDROCHLORIDE [Suspect]
     Route: 048
  2. PARACETAMOL [Suspect]
     Route: 048
  3. OXYCODONE [Suspect]
  4. HYDROCODONE [Suspect]
  5. CITALOPRAM (FORMULATION UNKNOWN) (CITALOPRAM) [Suspect]
  6. METOPROLOL [Suspect]
  7. DEXTROMETHORPHAN HBR (FORMULATION UNKNOWN) (DEXTROMETHORPHAN) [Suspect]

REACTIONS (2)
  - Drug abuse [None]
  - Exposure via ingestion [None]
